FAERS Safety Report 7409943-8 (Version None)
Quarter: 2011Q2

REPORT INFORMATION
  Report Type: 
  Country: None (occurrence: None)
  Receive Date: 20110412
  Receipt Date: 20110331
  Transmission Date: 20111010
  Serious: Yes (Other)
  Sender: FDA-Public Use
  Company Number: PHHY2011DE19501

PATIENT
  Sex: Female
  Weight: 56 kg

DRUGS (5)
  1. NEXIUM [Concomitant]
     Dosage: 20 MG, UNK
  2. ACC 200 [Concomitant]
     Dosage: 600 MG, UNK
  3. FURESIS [Concomitant]
     Dosage: 80 MG, UNK
  4. ZOMETA [Suspect]
     Dosage: 4 MG, EVERY 3-4 WEEKS
     Route: 042
     Dates: start: 20101029, end: 20110126
  5. DELIX [Concomitant]
     Dosage: 10 MG, UNK

REACTIONS (4)
  - PAIN [None]
  - ERYTHEMA [None]
  - SWELLING [None]
  - OSTEONECROSIS OF JAW [None]
